FAERS Safety Report 10018929 (Version 13)
Quarter: 2016Q3

REPORT INFORMATION
  Report Type: Spontaneous
  Country: US (occurrence: US)
  Receive Date: 20140318
  Receipt Date: 20160805
  Transmission Date: 20161108
  Serious: Yes (Hospitalization, Other)
  Sender: FDA-Public Use
  Company Number: US-GLAXOSMITHKLINE-A1064325A

PATIENT
  Age: 49 Year
  Sex: Female
  Weight: 74 kg

DRUGS (67)
  1. NORCO [Concomitant]
     Active Substance: ACETAMINOPHEN\HYDROCODONE BITARTRATE
  2. AMITRIPTYLINE [Suspect]
     Active Substance: AMITRIPTYLINE
     Indication: MIGRAINE
     Dosage: 150 MG, QD
     Route: 048
  3. AMITRIPTYLINE [Suspect]
     Active Substance: AMITRIPTYLINE
     Dosage: 75 MG, QD
     Route: 048
  4. TOPIRAMATE. [Suspect]
     Active Substance: TOPIRAMATE
     Dosage: 175 MG, BID
     Dates: start: 20150210, end: 201502
  5. PLAVIX [Concomitant]
     Active Substance: CLOPIDOGREL BISULFATE
  6. FOLIC ACID. [Concomitant]
     Active Substance: FOLIC ACID
  7. MUPIROCIN. [Concomitant]
     Active Substance: MUPIROCIN
  8. AMOXICILLIN HYDRATE [Concomitant]
     Active Substance: AMOXICILLIN
  9. FUROSEMIDE. [Concomitant]
     Active Substance: FUROSEMIDE
  10. HYDROXYZ PAM [Concomitant]
     Active Substance: HYDROXYZINE PAMOATE
  11. LEVETIRACETAM XR [Suspect]
     Active Substance: LEVETIRACETAM
     Dosage: 2500 MG, QD
     Route: 048
     Dates: start: 20141115, end: 20141201
  12. LORCET [Interacting]
     Active Substance: ACETAMINOPHEN\HYDROCODONE BITARTRATE
     Indication: PRODUCT USED FOR UNKNOWN INDICATION
     Dosage: 1 DF, QID
     Route: 048
     Dates: end: 20120713
  13. ATENOLOL. [Suspect]
     Active Substance: ATENOLOL
     Indication: PRODUCT USED FOR UNKNOWN INDICATION
     Dosage: 25 MG, QD
     Route: 048
     Dates: end: 20140904
  14. TALWIN [Concomitant]
     Active Substance: PENTAZOCINE LACTATE
  15. PROMETHAZINE [Concomitant]
     Active Substance: PROMETHAZINE\PROMETHAZINE HYDROCHLORIDE
  16. POTIGA [Suspect]
     Active Substance: EZOGABINE
     Dosage: 600 MG, TID
     Route: 048
     Dates: start: 20140421
  17. KEPPRA [Suspect]
     Active Substance: LEVETIRACETAM
     Dosage: 2000 MG, BID
     Dates: start: 201112
  18. LOVENOX [Concomitant]
     Active Substance: ENOXAPARIN SODIUM
  19. LORAZEPAM. [Concomitant]
     Active Substance: LORAZEPAM
  20. BUTORPHANOL TARTRATE. [Concomitant]
     Active Substance: BUTORPHANOL TARTRATE
  21. METHYLPRED [Concomitant]
     Active Substance: METHYLPREDNISOLONE
  22. PREMARIN [Concomitant]
     Active Substance: ESTROGENS, CONJUGATED
  23. IPRATROPIUM BROMIDE AND ALBUTEROL SULFATE [Concomitant]
     Active Substance: ALBUTEROL SULFATE\IPRATROPIUM BROMIDE
  24. POTIGA [Suspect]
     Active Substance: EZOGABINE
     Dosage: 300 MG, TID
     Route: 048
  25. POTIGA [Suspect]
     Active Substance: EZOGABINE
     Dosage: 250 MG, TID
     Route: 048
     Dates: end: 20140421
  26. LAMICTAL [Interacting]
     Active Substance: LAMOTRIGINE
     Dosage: 300 MG, QD
     Dates: start: 20120312, end: 2012
  27. LEVETIRACETAM XR [Suspect]
     Active Substance: LEVETIRACETAM
     Dosage: 2500 MG, BID
     Dates: start: 20141201, end: 20150827
  28. DULCOLAX NOS [Suspect]
     Active Substance: BISACODYL OR DOCUSATE SODIUM
     Indication: FAECES HARD
     Dosage: UNK, U
     Route: 065
     Dates: start: 201507
  29. SYNTHROID [Concomitant]
     Active Substance: LEVOTHYROXINE SODIUM
  30. XENICAL [Concomitant]
     Active Substance: ORLISTAT
  31. TIZADINE [Concomitant]
     Active Substance: TIZANIDINE HYDROCHLORIDE
  32. SULFAMETHOXAZOLE-TRIMETHOPRIM (SMZ) [Concomitant]
     Active Substance: SULFAMETHOXAZOLE\TRIMETHOPRIM
  33. POTIGA [Suspect]
     Active Substance: EZOGABINE
     Indication: SIMPLE PARTIAL SEIZURES
     Dosage: 50 MG, TID
     Route: 048
     Dates: start: 20120801
  34. LEVETIRACETAM XR [Suspect]
     Active Substance: LEVETIRACETAM
     Indication: SEIZURE
     Dosage: 2000 MG, QD
     Route: 048
     Dates: start: 20141016, end: 20141114
  35. LEVETIRACETAM. [Suspect]
     Active Substance: LEVETIRACETAM
     Indication: SEIZURE
     Dosage: UNK, TID
     Route: 048
     Dates: start: 20150827
  36. DULCOLAX NOS [Suspect]
     Active Substance: BISACODYL OR DOCUSATE SODIUM
     Indication: PROPHYLAXIS
  37. VITAMIN D3 [Concomitant]
     Active Substance: CHOLECALCIFEROL
  38. POTIGA [Suspect]
     Active Substance: EZOGABINE
     Dosage: 200 MG, TID
     Route: 048
  39. LAMICTAL [Interacting]
     Active Substance: LAMOTRIGINE
     Indication: SIMPLE PARTIAL SEIZURES
     Dosage: 100 MG, BID
  40. LAMICTAL [Interacting]
     Active Substance: LAMOTRIGINE
     Indication: COMPLEX PARTIAL SEIZURES
     Dosage: 275 MG, QD
  41. METHADONE [Suspect]
     Active Substance: METHADONE HYDROCHLORIDE
     Dosage: 5 MG, TID
     Route: 048
  42. AMITRIPTYLINE [Suspect]
     Active Substance: AMITRIPTYLINE
     Dosage: 100 MG, QD
     Route: 048
     Dates: start: 201409
  43. TOPIRAMATE. [Suspect]
     Active Substance: TOPIRAMATE
     Indication: SEIZURE
     Dosage: 100 MG, QD
     Route: 048
     Dates: start: 201409
  44. HYDROMORPHONE [Suspect]
     Active Substance: HYDROMORPHONE
     Indication: PAIN
     Dosage: UNK, U
     Route: 065
  45. ALENDRONATE [Concomitant]
     Active Substance: ALENDRONATE SODIUM
  46. POTIGA [Suspect]
     Active Substance: EZOGABINE
     Indication: GENERALISED TONIC-CLONIC SEIZURE
     Dosage: 300 MG, BID
     Route: 048
     Dates: end: 201411
  47. KEPPRA [Suspect]
     Active Substance: LEVETIRACETAM
     Indication: SEIZURE
     Dosage: 750 MG, BID
     Route: 048
     Dates: start: 201112
  48. TOPIRAMATE. [Suspect]
     Active Substance: TOPIRAMATE
     Dosage: 150 MG, BID
     Route: 048
     Dates: start: 20141201, end: 20150209
  49. TOPIRAMATE. [Suspect]
     Active Substance: TOPIRAMATE
     Dosage: 200 MG, BID
     Route: 048
     Dates: start: 201502
  50. HYDROCODONE-ACETAMINOPHEN [Suspect]
     Active Substance: ACETAMINOPHEN\HYDROCODONE
     Indication: PAIN
     Dosage: 1 DF, QID
     Route: 048
  51. NALOXONE + PENTAZOCINE [Concomitant]
  52. LIDOCAINE. [Concomitant]
     Active Substance: LIDOCAINE
  53. CLINDAMYCIN [Concomitant]
     Active Substance: CLINDAMYCIN\CLINDAMYCIN PHOSPHATE
  54. LEXAPRO [Concomitant]
     Active Substance: ESCITALOPRAM OXALATE
  55. VENLAFAXINE-HCL ER [Concomitant]
  56. POTIGA [Suspect]
     Active Substance: EZOGABINE
     Indication: COMPLEX PARTIAL SEIZURES
     Dosage: 800 MG, Z
     Route: 048
  57. POTIGA [Suspect]
     Active Substance: EZOGABINE
     Dosage: 275 MG, TID
     Route: 048
  58. METHADONE [Suspect]
     Active Substance: METHADONE HYDROCHLORIDE
     Indication: PAIN
     Dosage: 7.5 MG, TID
     Dates: end: 201505
  59. METHADONE [Suspect]
     Active Substance: METHADONE HYDROCHLORIDE
     Dosage: 10 MG, TID
     Route: 048
     Dates: start: 201505
  60. DIAZEPAM. [Suspect]
     Active Substance: DIAZEPAM
     Indication: PRODUCT USED FOR UNKNOWN INDICATION
     Dosage: 10 MG, QID
  61. TOPIRAMATE. [Suspect]
     Active Substance: TOPIRAMATE
     Dosage: 75 MG, BID
     Route: 048
     Dates: start: 201409, end: 20141201
  62. DILANTIN [Concomitant]
     Active Substance: PHENYTOIN
  63. CALCIUM [Concomitant]
     Active Substance: CALCIUM
  64. ZOLPIDEM [Concomitant]
     Active Substance: ZOLPIDEM\ZOLPIDEM TARTRATE
  65. ROBAXIN [Concomitant]
     Active Substance: METHOCARBAMOL
  66. MELOXICAM. [Concomitant]
     Active Substance: MELOXICAM
  67. MICRO-K [Concomitant]
     Active Substance: POTASSIUM CHLORIDE

REACTIONS (104)
  - Diplopia [Recovered/Resolved]
  - Visual field defect [Recovering/Resolving]
  - Refraction disorder [Unknown]
  - Hemiparesis [Recovered/Resolved]
  - Dysarthria [Recovering/Resolving]
  - Paraesthesia [Recovering/Resolving]
  - Joint range of motion decreased [Recovering/Resolving]
  - Musculoskeletal stiffness [Not Recovered/Not Resolved]
  - Cubital tunnel syndrome [Unknown]
  - Muscular weakness [Recovered/Resolved]
  - Drug ineffective [Unknown]
  - Anticonvulsant drug level above therapeutic [Unknown]
  - Crying [Unknown]
  - Fear [Unknown]
  - Fatigue [Unknown]
  - Pharyngitis [Unknown]
  - Amnesia [Unknown]
  - Scleral discolouration [Unknown]
  - Headache [Not Recovered/Not Resolved]
  - Intervertebral disc protrusion [Unknown]
  - Musculoskeletal pain [Unknown]
  - Diarrhoea [Unknown]
  - Dysphagia [Recovered/Resolved]
  - Weight decreased [Unknown]
  - Dyspnoea [Unknown]
  - Mood altered [Unknown]
  - Occipital neuralgia [Unknown]
  - Asthenopia [Recovering/Resolving]
  - Dry eye [Unknown]
  - Road traffic accident [Unknown]
  - Spinal fusion surgery [Unknown]
  - Neck pain [Recovering/Resolving]
  - Medication residue present [Unknown]
  - Fall [Unknown]
  - Drug hypersensitivity [Unknown]
  - Decreased appetite [Unknown]
  - Activities of daily living impaired [Not Recovered/Not Resolved]
  - Dyschromatopsia [Unknown]
  - Mental impairment [Recovered/Resolved]
  - Spinal cord compression [Unknown]
  - Depression [Recovered/Resolved]
  - Pain [Unknown]
  - Chest pain [Unknown]
  - Back pain [Unknown]
  - Cervical radiculopathy [Unknown]
  - Aphasia [Recovering/Resolving]
  - Brain oedema [Unknown]
  - Spinal osteoarthritis [Unknown]
  - Back injury [Unknown]
  - Arthralgia [Unknown]
  - Emotional distress [Unknown]
  - Adjustment disorder [Unknown]
  - Lymph node pain [Unknown]
  - Upper-airway cough syndrome [Unknown]
  - Rash [Unknown]
  - Inappropriate schedule of drug administration [Unknown]
  - Condition aggravated [Unknown]
  - Constipation [Unknown]
  - Transient ischaemic attack [Unknown]
  - Cervical vertebral fracture [Recovering/Resolving]
  - Eye colour change [Recovering/Resolving]
  - Hemianopia [Unknown]
  - Nystagmus [Recovered/Resolved]
  - Photophobia [Unknown]
  - Disturbance in attention [Recovered/Resolved]
  - Urinary incontinence [Recovered/Resolved]
  - Intervertebral disc operation [Unknown]
  - Arthritis [Unknown]
  - Migraine-triggered seizure [Not Recovered/Not Resolved]
  - Convulsive threshold lowered [Unknown]
  - Migraine [Unknown]
  - Initial insomnia [Recovered/Resolved]
  - Insomnia [Recovered/Resolved]
  - Dizziness [Unknown]
  - Lumbar vertebral fracture [Unknown]
  - Peripheral swelling [Unknown]
  - Visual acuity reduced [Not Recovered/Not Resolved]
  - Retinal disorder [Unknown]
  - Pupillary reflex impaired [Unknown]
  - Vision blurred [Recovered/Resolved]
  - Retinal scar [Unknown]
  - Eye pain [Unknown]
  - Cataract nuclear [Unknown]
  - Hypotension [Recovered/Resolved]
  - Intervertebral disc degeneration [Unknown]
  - Spinal flattening [Unknown]
  - Radiculitis brachial [Unknown]
  - Limb injury [Unknown]
  - Oropharyngeal pain [Unknown]
  - Lower respiratory tract congestion [Unknown]
  - Nausea [Unknown]
  - Facet joint syndrome [Unknown]
  - Retinal pigmentation [Not Recovered/Not Resolved]
  - Memory impairment [Recovered/Resolved]
  - Facial paralysis [Unknown]
  - Hypoaesthesia [Not Recovered/Not Resolved]
  - Ataxia [Recovering/Resolving]
  - Muscle tightness [Recovering/Resolving]
  - Preictal state [Unknown]
  - Cough [Recovered/Resolved]
  - Drug interaction [Unknown]
  - Affect lability [Unknown]
  - Incomplete spinal fusion [Unknown]
  - Optic neuropathy [Unknown]

NARRATIVE: CASE EVENT DATE: 20120103
